FAERS Safety Report 7103419-3 (Version None)
Quarter: 2010Q4

REPORT INFORMATION
  Report Type: 
  Country: None (occurrence: None)
  Receive Date: 20101115
  Receipt Date: 20090422
  Transmission Date: 20110411
  Serious: No
  Sender: FDA-Public Use
  Company Number: US-KINGPHARMUSA00001-K200900476

PATIENT
  Sex: Female

DRUGS (4)
  1. CYTOMEL [Suspect]
     Indication: BLOOD THYROID STIMULATING HORMONE INCREASED
     Dosage: 5 MCG, QD
     Route: 048
     Dates: start: 20081001
  2. CYTOMEL [Suspect]
     Dosage: 5 MCG, BID
     Route: 048
  3. SYNTHROID [Concomitant]
     Indication: TRI-IODOTHYRONINE ABNORMAL
     Dosage: 50 MCG, UNK
     Dates: start: 20080101
  4. SYNTHROID [Concomitant]
     Indication: THYROXINE ABNORMAL

REACTIONS (3)
  - ARTHRALGIA [None]
  - FLUSHING [None]
  - PRURITUS [None]
